FAERS Safety Report 5862776-6 (Version None)
Quarter: 2008Q3

REPORT INFORMATION
  Report Type: 
  Country: None (occurrence: None)
  Receive Date: 20080828
  Receipt Date: 20080822
  Transmission Date: 20090109
  Serious: Yes (Hospitalization, Other)
  Sender: FDA-Public Use
  Company Number: US-AMGEN-US167256

PATIENT
  Sex: Female
  Weight: 79.9 kg

DRUGS (7)
  1. ETANERCEPT [Suspect]
     Indication: HEPATITIS ALCOHOLIC
     Route: 058
     Dates: start: 20060123, end: 20060201
  2. IBUPROFEN [Concomitant]
  3. FLEXERIL [Concomitant]
  4. ALDACTONE [Concomitant]
  5. LASIX [Concomitant]
  6. ALLEGRA [Concomitant]
  7. VITAMIN K TAB [Concomitant]

REACTIONS (1)
  - ESCHERICHIA URINARY TRACT INFECTION [None]
